FAERS Safety Report 6081116-3 (Version None)
Quarter: 2009Q1

REPORT INFORMATION
  Report Type: 
  Country: None (occurrence: None)
  Receive Date: 20090217
  Receipt Date: 20090210
  Transmission Date: 20090719
  Serious: Yes (Hospitalization, Other)
  Sender: FDA-Public Use
  Company Number: BR-ABBOTT-09P-020-0502666-00

PATIENT
  Sex: Female

DRUGS (3)
  1. HUMIRA [Suspect]
     Indication: RHEUMATOID ARTHRITIS
     Route: 058
     Dates: start: 20050601
  2. CORTICOSTEROID NOS [Concomitant]
     Indication: RHEUMATOID ARTHRITIS
     Dosage: 5 MILLIGRAM
  3. HORMONES NOS [Concomitant]
     Indication: HORMONE REPLACEMENT THERAPY

REACTIONS (8)
  - ABDOMINAL INFECTION [None]
  - ABDOMINAL PAIN [None]
  - ALOPECIA [None]
  - APPENDICITIS PERFORATED [None]
  - INCREASED BRONCHIAL SECRETION [None]
  - LOSS OF CONSCIOUSNESS [None]
  - LUNG NEOPLASM [None]
  - PYREXIA [None]
